FAERS Safety Report 9679104 (Version 1)
Quarter: 2013Q4

REPORT INFORMATION
  Report Type: Spontaneous
  Country: GB (occurrence: None)
  Receive Date: 20131107
  Receipt Date: 20131107
  Transmission Date: 20140711
  Serious: Yes (Other)
  Sender: FDA-Public Use
  Company Number: AUR-APL-2013-09186

PATIENT
  Age: 46 Year
  Sex: Male
  Weight: 92.07 kg

DRUGS (6)
  1. SIMVASTATIN (SIMVASTATIN) [Suspect]
     Indication: HYPERCHOLESTEROLAEMIA
     Route: 048
     Dates: start: 1996, end: 2013
  2. ATORVASTATIN (ATORVASTATIN) [Suspect]
     Route: 048
  3. ASPIRIN (ACETYLSALICYLIC ACID) [Concomitant]
  4. BISOPROLOL (BISOPROLOL) [Concomitant]
  5. OMEPRAZOLE (OMEPRAZOLE) [Concomitant]
  6. RAMIPRIL (RAMPRIL) [Concomitant]

REACTIONS (12)
  - Myalgia [None]
  - Arthralgia [None]
  - Pruritus [None]
  - Pain in extremity [None]
  - Musculoskeletal pain [None]
  - Muscle strain [None]
  - Muscular weakness [None]
  - Pain in extremity [None]
  - Pain in extremity [None]
  - Arthralgia [None]
  - Arthralgia [None]
  - Arthralgia [None]
